FAERS Safety Report 17934480 (Version 1)
Quarter: 2020Q2

REPORT INFORMATION
  Report Type: Spontaneous
  Country: US (occurrence: US)
  Receive Date: 20200624
  Receipt Date: 20200624
  Transmission Date: 20200714
  Serious: No
  Sender: FDA-Public Use
  Company Number: US-ASTELLAS-2020US016818

PATIENT
  Sex: Male

DRUGS (1)
  1. PADCEV [Suspect]
     Active Substance: ENFORTUMAB VEDOTIN-EJFV
     Indication: PRODUCT USED FOR UNKNOWN INDICATION
     Dosage: 2 DOSES, UNKNOWN FREQ.
     Route: 065
     Dates: start: 2020

REACTIONS (3)
  - Diarrhoea [Unknown]
  - Infection [Unknown]
  - Fatigue [Unknown]

NARRATIVE: CASE EVENT DATE: 2020
